FAERS Safety Report 6223270-6 (Version None)
Quarter: 2009Q2

REPORT INFORMATION
  Report Type: 
  Country: None (occurrence: None)
  Receive Date: 20090611
  Receipt Date: 20090601
  Transmission Date: 20091009
  Serious: Yes (Hospitalization)
  Sender: FDA-Public Use
  Company Number: US-ELI_LILLY_AND_COMPANY-US200906001229

PATIENT
  Sex: Male

DRUGS (3)
  1. HUMALOG [Suspect]
     Dosage: 17 U, UNK
     Dates: start: 20020101
  2. HUMALOG [Suspect]
     Dosage: UNK, UNKNOWN
  3. NOVOLOG [Concomitant]
     Dates: start: 20090501

REACTIONS (5)
  - BLOOD GLUCOSE DECREASED [None]
  - BLOOD GLUCOSE INCREASED [None]
  - DRUG DOSE OMISSION [None]
  - HOSPITALISATION [None]
  - INCORRECT DOSE ADMINISTERED [None]
